FAERS Safety Report 7120979-7 (Version None)
Quarter: 2010Q4

REPORT INFORMATION
  Report Type: 
  Country: None (occurrence: None)
  Receive Date: 20101124
  Receipt Date: 20100122
  Transmission Date: 20110411
  Serious: No
  Sender: FDA-Public Use
  Company Number: US-PFIZER INC-2010010652

PATIENT
  Sex: Female
  Weight: 86.168 kg

DRUGS (4)
  1. TIKOSYN [Suspect]
     Indication: ATRIAL FIBRILLATION
     Dosage: 250 UG, 2X/DAY
     Route: 048
     Dates: start: 20090701
  2. WARFARIN [Concomitant]
     Dosage: UNK
  3. ATENOLOL [Concomitant]
     Dosage: UNK
  4. ENALAPRIL MALEATE [Concomitant]
     Dosage: UNK

REACTIONS (3)
  - BACK PAIN [None]
  - PRURITUS [None]
  - RASH PAPULAR [None]
